FAERS Safety Report 23452392 (Version 1)
Quarter: 2024Q1

REPORT INFORMATION
  Report Type: Spontaneous
  Country: US (occurrence: None)
  Receive Date: 20240128
  Receipt Date: 20240128
  Transmission Date: 20240410
  Serious: Yes (Hospitalization, Other)
  Sender: FDA-Public Use
  Company Number: None

PATIENT
  Age: 60 Year
  Sex: Male
  Weight: 85.5 kg

DRUGS (1)
  1. OXYCODONE [Suspect]
     Active Substance: OXYCODONE\OXYCODONE HYDROCHLORIDE

REACTIONS (3)
  - Oropharyngeal pain [None]
  - Hypophagia [None]
  - Product use issue [None]

NARRATIVE: CASE EVENT DATE: 20240126
